FAERS Safety Report 13017356 (Version 1)
Quarter: 2016Q4

REPORT INFORMATION
  Report Type: Spontaneous
  Country: US (occurrence: US)
  Receive Date: 20161212
  Receipt Date: 20161212
  Transmission Date: 20170207
  Serious: Yes (Other)
  Sender: FDA-Public Use
  Company Number: US-LPDUSPRD-20150899

PATIENT
  Age: 55 Year
  Sex: Female

DRUGS (1)
  1. VENOFER [Suspect]
     Active Substance: IRON SUCROSE
     Dosage: 300 MG IN 250 ML NSS IN 90 MIN
     Route: 042
     Dates: start: 20151027, end: 20151106

REACTIONS (2)
  - Pruritus [Unknown]
  - Peripheral swelling [Unknown]
